FAERS Safety Report 6553486-0 (Version None)
Quarter: 2010Q1

REPORT INFORMATION
  Report Type: 
  Country: None (occurrence: None)
  Receive Date: 20100122
  Receipt Date: 20100106
  Transmission Date: 20100710
  Serious: Yes (Death)
  Sender: FDA-Public Use
  Company Number: 2009AC000011

PATIENT
  Age: 85 Year
  Sex: Female

DRUGS (9)
  1. DIGOXIN [Suspect]
     Dosage: 0.125 MG; PO
     Route: 048
     Dates: start: 20070301
  2. COZAAR [Concomitant]
  3. FUROSEMIDE [Concomitant]
  4. GLIPIZIDE [Concomitant]
  5. OMEPRAZOLE [Concomitant]
  6. FERROUS SULFATE TAB [Concomitant]
  7. SPIRONOLACTONE [Concomitant]
  8. WARFARIN SODIUM [Concomitant]
  9. METRONIDAZOLE [Concomitant]

REACTIONS (2)
  - ECONOMIC PROBLEM [None]
  - MULTIPLE INJURIES [None]
